FAERS Safety Report 9697951 (Version 3)
Quarter: 2014Q1

REPORT INFORMATION
  Report Type: Spontaneous
  Country: US (occurrence: US)
  Receive Date: 20131120
  Receipt Date: 20140210
  Transmission Date: 20141002
  Serious: No
  Sender: FDA-Public Use
  Company Number: US-JNJFOC-20131104916

PATIENT
  Age: 57 Year
  Sex: Female
  Weight: 78.02 kg

DRUGS (38)
  1. SANDOZ FENTANYL TRANSDERMAL SYSTEM [Suspect]
     Indication: PAIN
     Route: 062
     Dates: start: 201309
  2. SANDOZ FENTANYL TRANSDERMAL SYSTEM [Suspect]
     Indication: PAIN
     Route: 062
     Dates: start: 20131001, end: 20131120
  3. SANDOZ FENTANYL TRANSDERMAL SYSTEM [Suspect]
     Indication: PAIN
     Route: 062
  4. TOPIRAMATE [Concomitant]
     Dosage: 2 TABLETS 2 TIMES EVERY DAY IN THE MORNING AND EVENING
     Route: 048
  5. SPIRIVA [Concomitant]
     Indication: CHRONIC OBSTRUCTIVE PULMONARY DISEASE
     Route: 055
     Dates: start: 2010
  6. SYMBICORT [Concomitant]
     Indication: CHRONIC OBSTRUCTIVE PULMONARY DISEASE
     Dosage: 160 MCG/4.5 MCG/2 PUFFS TWICE DAILY; IN THE MORNING AND IN THE EVENING
     Route: 055
     Dates: start: 2010
  7. ALBUTEROL [Concomitant]
     Indication: CHRONIC OBSTRUCTIVE PULMONARY DISEASE
     Dosage: 4-6 TIMES DAILY AS NEEDED
     Route: 055
     Dates: start: 2003
  8. ALBUTEROL [Concomitant]
     Indication: CHRONIC OBSTRUCTIVE PULMONARY DISEASE
     Dosage: 2.5 MG/3 ML (0.083 %) INHALE 3 ML BY NEBULIZATION ROUTE 3 TIMES A DAY
     Route: 055
  9. FLONASE [Concomitant]
     Indication: CHRONIC OBSTRUCTIVE PULMONARY DISEASE
     Dosage: 50 UG SOLUTION/ 1 SPRAY EACH NOSTRIL
     Route: 045
  10. CELEXA [Concomitant]
     Indication: ANXIETY
     Route: 048
     Dates: start: 1989
  11. TRIAMTERENE AND HYDROCHLOROTHIAZIDE [Concomitant]
     Indication: HYPERTENSION
     Route: 048
     Dates: start: 2011
  12. LISINOPRIL [Concomitant]
     Indication: HYPERTENSION
     Route: 048
     Dates: start: 2011
  13. ASPIRIN [Concomitant]
     Indication: CARDIAC DISORDER
     Route: 048
     Dates: start: 2008
  14. PERCOCET [Concomitant]
     Indication: PAIN
     Dosage: TABLET BY ORAL ROUTE; EVERY 6-8 HOURS AS NEEDED
  15. ZYRTEC [Concomitant]
     Indication: SEASONAL ALLERGY
     Route: 048
     Dates: start: 2010
  16. CLARITIN [Concomitant]
     Indication: SEASONAL ALLERGY
     Route: 048
     Dates: start: 2010
  17. SENNA [Concomitant]
     Indication: CONSTIPATION
     Dosage: 1 TO 2 TABLET BY ORAL ROUTE EVERY DAY AS NEEDED
     Route: 048
     Dates: start: 2010
  18. EPIPEN [Concomitant]
     Indication: ALLERGY TO ARTHROPOD STING
     Route: 058
  19. HYDROXYZINE HYDROCHLORIDE [Concomitant]
     Indication: ALLERGY TO ARTHROPOD STING
     Dosage: TAKE 2- 3 TABLET EVERY EVENING
     Route: 048
  20. VENTOLIN HFA [Concomitant]
     Indication: WHEEZING
     Dosage: TAKE 1 TO 2 PUFF BY INHALATION ROUTE EVERY 4 HOURS AS NEEDED
     Route: 055
  21. LORATADINE [Concomitant]
     Route: 048
  22. EPINEPHRINE [Concomitant]
     Indication: ANAPHYLACTIC REACTION
     Route: 030
  23. ALBUTEROL SULPHATE [Concomitant]
     Route: 045
  24. LASIX [Concomitant]
     Route: 048
  25. DYAZIDE [Concomitant]
     Route: 048
  26. SINGULAIR [Concomitant]
     Dosage: EVERY DAY IN THE EVENING
     Route: 048
  27. ACETAMINOPHEN [Concomitant]
     Indication: ANALGESIC THERAPY
     Dosage: TAKE 1 TO 2 TABLET (500 MG) BY ORAL ROUTE EVERY 6 HOURS AS NEEDED
     Route: 048
  28. COLACE [Concomitant]
     Indication: CONSTIPATION
     Dosage: USE ONE PR FOR CONSTIPATION AS NEEDED
     Route: 054
  29. CAPSAICIN [Concomitant]
     Dosage: APPLY BY TOPICAL ROUTE 3 TIMES EVERY DAY TO THE AFFECTED AREA(S)
     Route: 061
  30. IBUPROFEN [Concomitant]
     Dosage: 3 TIMES EVERY DAY WITH FOOD
     Route: 048
  31. CLONAZEPAM [Concomitant]
     Dosage: 3 TIMES EVERY DAY WITH FOOD
     Route: 048
  32. RISPERIDONE [Concomitant]
     Dosage: 3 TIMES EVERY DAY WITH FOOD
     Route: 048
  33. ATIVAN [Concomitant]
     Dosage: EVERY EVENING
     Route: 048
  34. GABAPENTIN [Concomitant]
     Dosage: EVERY EVENING
     Route: 048
  35. FLUOCINONIDE [Concomitant]
     Dosage: NOT TO BE USED FOR MORE THAN 2 WEEKS MO OR FACE OR GROIN
     Route: 061
  36. COLACE [Concomitant]
     Dosage: AS NEEDED
     Route: 048
  37. ACETIC ACID/HYDROCORTISONE [Concomitant]
     Dosage: 2-4 DROPS BY OTIC ROUTE 2-3 TIMES A DAY
     Route: 065
  38. DYAZIDE [Concomitant]
     Route: 048

REACTIONS (3)
  - Wrong technique in drug usage process [Unknown]
  - Drug ineffective [Not Recovered/Not Resolved]
  - Product adhesion issue [Recovered/Resolved]
